FAERS Safety Report 8001860-8 (Version None)
Quarter: 2011Q4

REPORT INFORMATION
  Report Type: 
  Country: None (occurrence: None)
  Receive Date: 20111123
  Receipt Date: 20110819
  Transmission Date: 20120403
  Serious: No
  Sender: FDA-Public Use
  Company Number: 336274

PATIENT
  Age: 47 Year
  Sex: Female

DRUGS (1)
  1. VICTOZA [Suspect]
     Indication: GLUCOSE TOLERANCE IMPAIRED
     Dosage: 1.2 MG, QD, SUBCUTANEOUS
     Route: 058

REACTIONS (3)
  - NAUSEA [None]
  - INJECTION SITE HAEMATOMA [None]
  - WEIGHT DECREASED [None]
